FAERS Safety Report 18144851 (Version 1)
Quarter: 2020Q3

REPORT INFORMATION
  Report Type: Spontaneous
  Country: PH (occurrence: PH)
  Receive Date: 20200813
  Receipt Date: 20200813
  Transmission Date: 20201103
  Serious: Yes (Other)
  Sender: FDA-Public Use
  Company Number: PH-ORION CORPORATION ORION PHARMA-ENTC2020-0222

PATIENT
  Age: 87 Year
  Sex: Male

DRUGS (1)
  1. STALEVO [Suspect]
     Active Substance: CARBIDOPA\ENTACAPONE\LEVODOPA
     Indication: PARKINSON^S DISEASE
     Dosage: STRENGTH: 100/25/200 MG
     Route: 065

REACTIONS (3)
  - Product dose omission issue [Unknown]
  - Seizure [Unknown]
  - Product availability issue [Unknown]
